FAERS Safety Report 16853382 (Version 2)
Quarter: 2019Q4

REPORT INFORMATION
  Report Type: Report from Study
  Country: US (occurrence: US)
  Receive Date: 20190925
  Receipt Date: 20191114
  Transmission Date: 20200122
  Serious: Yes (Hospitalization)
  Sender: FDA-Public Use
  Company Number: US-BIOGEN-2019BI00789086

PATIENT
  Sex: Male
  Weight: 112.14 kg

DRUGS (12)
  1. TECFIDERA [Suspect]
     Active Substance: DIMETHYL FUMARATE
     Route: 048
  2. METHYLPREDNISOLONE. [Concomitant]
     Active Substance: METHYLPREDNISOLONE
     Indication: PRODUCT USED FOR UNKNOWN INDICATION
     Route: 065
  3. VENTOLIN HFA [Concomitant]
     Active Substance: ALBUTEROL SULFATE
     Indication: PRODUCT USED FOR UNKNOWN INDICATION
     Route: 048
  4. PANTOPRAZOLE [Concomitant]
     Active Substance: PANTOPRAZOLE
     Indication: PRODUCT USED FOR UNKNOWN INDICATION
     Route: 048
  5. PREDNISONE. [Concomitant]
     Active Substance: PREDNISONE
     Dosage: 3 TABS
     Route: 065
  6. COPAXONE [Concomitant]
     Active Substance: GLATIRAMER ACETATE
     Indication: PRODUCT USED FOR UNKNOWN INDICATION
     Route: 065
  7. PREDNISONE. [Concomitant]
     Active Substance: PREDNISONE
     Dosage: 2 TABS
     Route: 065
  8. TECFIDERA [Suspect]
     Active Substance: DIMETHYL FUMARATE
     Indication: MULTIPLE SCLEROSIS
     Route: 065
  9. VITAMIN D2 [Concomitant]
     Active Substance: ERGOCALCIFEROL
     Indication: PRODUCT USED FOR UNKNOWN INDICATION
     Route: 048
  10. PREDNISONE. [Concomitant]
     Active Substance: PREDNISONE
     Dosage: 4 TABS
     Route: 065
  11. PREDNISONE. [Concomitant]
     Active Substance: PREDNISONE
     Dosage: 1 TABS
     Route: 065
  12. PREDNISONE. [Concomitant]
     Active Substance: PREDNISONE
     Indication: PRODUCT USED FOR UNKNOWN INDICATION
     Dosage: 5 TABS
     Route: 065

REACTIONS (11)
  - Hemiparesis [Recovered/Resolved]
  - Headache [Unknown]
  - Neck pain [Unknown]
  - Fatigue [Unknown]
  - Pain in extremity [Recovered/Resolved]
  - Dyschromatopsia [Unknown]
  - Ataxia [Unknown]
  - Dizziness [Recovered/Resolved]
  - Gait disturbance [Unknown]
  - Nausea [Unknown]
  - Eye pain [Recovered/Resolved]
